FAERS Safety Report 8407542-2 (Version None)
Quarter: 2012Q2

REPORT INFORMATION
  Report Type: 
  Country: None (occurrence: None)
  Receive Date: 20120529
  Receipt Date: 19960627
  Transmission Date: 20120825
  Serious: Yes (Other)
  Sender: FDA-Public Use
  Company Number: 002460

PATIENT
  Age: 62 Year
  Sex: Female

DRUGS (6)
  1. ALPRAZOLAM [Concomitant]
  2. NIPRADILOL (NIPRADILOL) [Concomitant]
  3. PLETAL [Suspect]
     Dosage: 200 MG, DAILY DOSE, ORAL
     Route: 048
     Dates: start: 19950204, end: 19960625
  4. ISOSORBIDE DINITRATE [Concomitant]
  5. TEPRENONE (TEPRENONE) [Concomitant]
  6. PENTOXIFYLLINE (PENTOXIVYLLINE) [Concomitant]

REACTIONS (5)
  - BRONCHIECTASIS [None]
  - MIDDLE LOBE SYNDROME [None]
  - HAEMOPTYSIS [None]
  - PNEUMONIA [None]
  - HAEMORRHAGIC DIATHESIS [None]
